FAERS Safety Report 6406579-2 (Version None)
Quarter: 2009Q4

REPORT INFORMATION
  Report Type: 
  Country: None (occurrence: None)
  Receive Date: 20091015
  Receipt Date: 20090918
  Transmission Date: 20100525
  Serious: Yes (Other)
  Sender: FDA-Public Use
  Company Number: DSA_41670_2009

PATIENT
  Sex: Female

DRUGS (3)
  1. WELLBUTRIN XL [Suspect]
     Indication: ATTENTION DEFICIT/HYPERACTIVITY DISORDER
     Dosage: 30-450 MG PER DAY, ORAL
     Route: 048
     Dates: start: 20040625
  2. WELLBUTRIN XL [Suspect]
     Indication: DEPRESSION
     Dosage: 30-450 MG PER DAY, ORAL
     Route: 048
     Dates: start: 20040625
  3. METHYLPHENIDATE HCL [Concomitant]

REACTIONS (3)
  - CAESAREAN SECTION [None]
  - DRUG EXPOSURE DURING PREGNANCY [None]
  - PREGNANCY [None]
